FAERS Safety Report 25936700 (Version 1)
Quarter: 2025Q4

REPORT INFORMATION
  Report Type: Spontaneous
  Country: US (occurrence: US)
  Receive Date: 20251017
  Receipt Date: 20251017
  Transmission Date: 20260118
  Serious: Yes (Hospitalization)
  Sender: ANI
  Company Number: US-ANIPHARMA-2025-US-046174

PATIENT
  Sex: Female

DRUGS (2)
  1. ACETAMINOPHEN\OXYCODONE HYDROCHLORIDE [Concomitant]
     Active Substance: ACETAMINOPHEN\OXYCODONE HYDROCHLORIDE
  2. CORTICOTROPIN [Suspect]
     Active Substance: CORTICOTROPIN
     Indication: Sarcoidosis
     Dosage: 80MG TWICE A WEEK
     Route: 058
     Dates: start: 202508

REACTIONS (2)
  - Fatigue [Unknown]
  - Swelling [Unknown]
